FAERS Safety Report 8487632-9 (Version None)
Quarter: 2012Q3

REPORT INFORMATION
  Report Type: 
  Country: None (occurrence: None)
  Receive Date: 20120705
  Receipt Date: 20120627
  Transmission Date: 20120928
  Serious: Yes (Hospitalization)
  Sender: FDA-Public Use
  Company Number: US-BAYER-2012-016046

PATIENT
  Age: 23 Year
  Sex: Female
  Weight: 90.703 kg

DRUGS (8)
  1. YASMIN [Suspect]
     Dosage: UNK
     Dates: start: 20000101, end: 20070601
  2. ASCORBIC ACID [Concomitant]
  3. PHENERGAN HCL [Concomitant]
  4. KEFLEX [Concomitant]
     Dosage: 500 MG, QID
  5. PERCOCET [Concomitant]
     Indication: PAIN
     Dosage: 2 TABS EVERY 3 HOURS
  6. COLACE [Concomitant]
     Dosage: 100 MG, BID
  7. VALIUM [Concomitant]
     Dosage: UNK UNK, PRN
  8. XANAX [Concomitant]
     Indication: ANXIETY
     Dosage: UNK UNK, PRN

REACTIONS (6)
  - PULMONARY EMBOLISM [None]
  - OEDEMA PERIPHERAL [None]
  - CHEST PAIN [None]
  - INJURY [None]
  - EMOTIONAL DISTRESS [None]
  - PAIN [None]
